FAERS Safety Report 18744841 (Version 1)
Quarter: 2021Q1

REPORT INFORMATION
  Report Type: Spontaneous
  Country: US (occurrence: US)
  Receive Date: 20210115
  Receipt Date: 20210115
  Transmission Date: 20210419
  Serious: Yes (Hospitalization, Other)
  Sender: FDA-Public Use
  Company Number: US-ZOGENIX INTERNATIONAL LIMITED, A WHOLLY OWNED SUBSIDIARY OF ZOGENIX, INC.-2021ZX000005

PATIENT
  Age: 17 Year
  Sex: Male

DRUGS (4)
  1. KEPPRA [Concomitant]
     Active Substance: LEVETIRACETAM
     Indication: PRODUCT USED FOR UNKNOWN INDICATION
     Route: 065
  2. FINTEPLA [Suspect]
     Active Substance: FENFLURAMINE
     Indication: SEVERE MYOCLONIC EPILEPSY OF INFANCY
     Route: 048
     Dates: start: 20200829
  3. FINTEPLA [Suspect]
     Active Substance: FENFLURAMINE
     Route: 048
     Dates: start: 20201227
  4. FINTEPLA [Suspect]
     Active Substance: FENFLURAMINE
     Route: 048
     Dates: end: 20201227

REACTIONS (5)
  - Nephrolithiasis [Unknown]
  - Seizure [Unknown]
  - Pain [Unknown]
  - Status epilepticus [Unknown]
  - Blood urine present [Unknown]

NARRATIVE: CASE EVENT DATE: 202012
